FAERS Safety Report 9939233 (Version 1)
Quarter: 2014Q1

REPORT INFORMATION
  Report Type: Report from Study
  Country: FR (occurrence: FR)
  Receive Date: 20140303
  Receipt Date: 20140303
  Transmission Date: 20141002
  Serious: Yes (Hospitalization)
  Sender: FDA-Public Use
  Company Number: FR-ASTELLAS-2014EU001702

PATIENT
  Age: 47 Year
  Sex: Female

DRUGS (10)
  1. TACROLIMUS MR4 CAPSULES [Suspect]
     Indication: IMMUNOSUPPRESSION
     Dosage: UNK
     Route: 065
     Dates: start: 20130527
  2. CELLCEPT                           /01275102/ [Concomitant]
     Indication: IMMUNOSUPPRESSION
     Dosage: UNK
     Route: 065
     Dates: start: 20130526
  3. SOLUPRED                           /00016201/ [Concomitant]
     Indication: IMMUNOSUPPRESSION
     Dosage: UNK
     Route: 065
     Dates: start: 20130527, end: 20130911
  4. PENTACARINAT [Concomitant]
     Indication: ANTIFUNGAL PROPHYLAXIS
     Dosage: UNK
     Route: 065
     Dates: start: 20130601, end: 20131107
  5. CALCIDIA [Concomitant]
     Indication: HYPOCALCAEMIA
     Dosage: UNK
     Route: 065
     Dates: start: 20130605
  6. DAFALGAN [Concomitant]
     Dosage: UNK
     Route: 065
     Dates: start: 20130605, end: 20130618
  7. DOMPERIDONE [Concomitant]
     Indication: NAUSEA
     Dosage: UNK
     Dates: start: 20130605, end: 20130627
  8. INEXIUM                            /01479302/ [Concomitant]
     Indication: GASTROOESOPHAGEAL REFLUX DISEASE
     Dosage: UNK
     Route: 065
     Dates: start: 20130605
  9. FORLAX                             /00754501/ [Concomitant]
     Indication: CONSTIPATION
     Dosage: UNK
     Route: 065
     Dates: start: 20130607, end: 20130627
  10. TARDYFERON [Concomitant]
     Indication: ANAEMIA
     Dosage: UNK
     Route: 065
     Dates: start: 20130607

REACTIONS (2)
  - Catheter removal [Recovered/Resolved]
  - Catheter removal [Recovered/Resolved]
